FAERS Safety Report 6589864-3 (Version None)
Quarter: 2010Q1

REPORT INFORMATION
  Report Type: 
  Country: None (occurrence: None)
  Receive Date: 20100212
  Receipt Date: 20100129
  Transmission Date: 20100710
  Serious: Yes (Hospitalization)
  Sender: FDA-Public Use
  Company Number: 09-PDX10-01017

PATIENT
  Age: 75 Year
  Sex: Male
  Weight: 68.6 kg

DRUGS (2)
  1. PRALATREXATE (20 MG/ML, INJECTION FOR INFUSION) [Suspect]
     Indication: DIFFUSE LARGE B-CELL LYMPHOMA
     Dosage: 10 MG/M2 (10 MG/M2, 1 IN 2 WK), IV
     Route: 042
     Dates: start: 20091005, end: 20091019
  2. GEMCITABINE [Suspect]
     Indication: DIFFUSE LARGE B-CELL LYMPHOMA
     Dosage: 400 MG/M2 (400 MG/M2, 1 IN 2 WK), IV
     Route: 042
     Dates: start: 20091006, end: 20091006

REACTIONS (3)
  - HAEMOGLOBIN ABNORMAL [None]
  - HYPOTENSION [None]
  - MUSCULAR WEAKNESS [None]
